FAERS Safety Report 5813086-4 (Version None)
Quarter: 2008Q3

REPORT INFORMATION
  Report Type: 
  Country: None (occurrence: None)
  Receive Date: 20080717
  Receipt Date: 20080108
  Transmission Date: 20090109
  Serious: No
  Sender: FDA-Public Use
  Company Number: A0701931A

PATIENT
  Age: 61 Year
  Sex: Female

DRUGS (4)
  1. NICORETTE [Suspect]
  2. NICORETTE [Suspect]
  3. NICORETTE [Suspect]
  4. NICORETTE (MINT) [Suspect]

REACTIONS (3)
  - HYPERSENSITIVITY [None]
  - INTENTIONAL DRUG MISUSE [None]
  - OROPHARYNGEAL BLISTERING [None]
